FAERS Safety Report 7416352-4 (Version None)
Quarter: 2011Q2

REPORT INFORMATION
  Report Type: 
  Country: None (occurrence: None)
  Receive Date: 20110414
  Receipt Date: 20110411
  Transmission Date: 20111010
  Serious: Yes (Hospitalization)
  Sender: FDA-Public Use
  Company Number: FR-ABBOTT-11P-056-0718440-00

PATIENT
  Sex: Female
  Weight: 70 kg

DRUGS (2)
  1. METHOTREXATE [Suspect]
     Indication: PSORIATIC ARTHROPATHY
     Route: 030
     Dates: start: 20060501, end: 20101201
  2. HUMIRA [Suspect]
     Indication: PSORIATIC ARTHROPATHY
     Dosage: 8-10 DAYS
     Route: 058
     Dates: start: 20060501, end: 20110201

REACTIONS (3)
  - HEPATIC FUNCTION ABNORMAL [None]
  - CHOLESTASIS [None]
  - CYTOLYTIC HEPATITIS [None]
